FAERS Safety Report 9626524 (Version 1)
Quarter: 2013Q4

REPORT INFORMATION
  Report Type: Report from Study
  Country: CA (occurrence: CA)
  Receive Date: 20131016
  Receipt Date: 20131016
  Transmission Date: 20140711
  Serious: Yes (Hospitalization, Other)
  Sender: FDA-Public Use
  Company Number: CA-ROCHE-1285763

PATIENT
  Age: 51 Year
  Sex: Male

DRUGS (13)
  1. ENFUVIRTIDE [Suspect]
     Indication: PRODUCT USED FOR UNKNOWN INDICATION
     Route: 058
  2. ISENTRESS [Suspect]
     Indication: PRODUCT USED FOR UNKNOWN INDICATION
     Route: 048
  3. PREZISTA [Suspect]
     Indication: PRODUCT USED FOR UNKNOWN INDICATION
     Route: 065
  4. VIDEX EC [Suspect]
     Indication: PRODUCT USED FOR UNKNOWN INDICATION
     Route: 065
  5. VIREAD [Suspect]
     Indication: PRODUCT USED FOR UNKNOWN INDICATION
     Route: 065
  6. RITONAVIR [Suspect]
     Indication: PRODUCT USED FOR UNKNOWN INDICATION
     Route: 065
  7. BACTRIM [Concomitant]
     Route: 065
  8. FUSIDIC ACID [Concomitant]
     Route: 065
  9. GABAPENTIN [Concomitant]
     Route: 065
  10. IBUPROFEN [Concomitant]
     Route: 065
  11. NEXIUM [Concomitant]
     Route: 065
  12. REYATAZ [Concomitant]
     Route: 065
  13. SILDENAFIL [Concomitant]
     Route: 065

REACTIONS (32)
  - Adenocarcinoma of colon [Unknown]
  - Arthralgia [Unknown]
  - Bronchospasm [Unknown]
  - Colectomy [Unknown]
  - Cough [Unknown]
  - Diarrhoea [Unknown]
  - Dizziness [Unknown]
  - Dry skin [Unknown]
  - Dysuria [Unknown]
  - Eczema [Unknown]
  - Erectile dysfunction [Unknown]
  - Facial wasting [Unknown]
  - Fatigue [Unknown]
  - Flatulence [Unknown]
  - Gastrooesophageal reflux disease [Unknown]
  - HIV wasting syndrome [Unknown]
  - Haemorrhoids [Unknown]
  - Herpes zoster [Unknown]
  - Insomnia [Unknown]
  - Libido decreased [Unknown]
  - Molluscum contagiosum [Unknown]
  - Nephrolithiasis [Unknown]
  - Non-cardiac chest pain [Unknown]
  - Oral candidiasis [Unknown]
  - Palpitations [Unknown]
  - Rectal haemorrhage [Unknown]
  - Renal cyst [Unknown]
  - Small intestinal obstruction [Unknown]
  - Syncope [Unknown]
  - Thrombocytopenia [Unknown]
  - Upper respiratory tract infection [Unknown]
  - Weight decreased [Unknown]
